FAERS Safety Report 4449596-4 (Version None)
Quarter: 2004Q3

REPORT INFORMATION
  Report Type: 
  Country: None (occurrence: None)
  Receive Date: 20040913
  Receipt Date: 20040826
  Transmission Date: 20050211
  Serious: Yes (Hospitalization)
  Sender: FDA-Public Use
  Company Number: A01200404081

PATIENT
  Age: 66 Year
  Sex: Male

DRUGS (2)
  1. ELOXATIN [Suspect]
     Indication: COLON CANCER
     Dosage: 210 MG OTHER INTRAVENOUS NOS
     Route: 042
     Dates: start: 20040824, end: 20040824
  2. XELODA [Concomitant]

REACTIONS (1)
  - LARYNGOSPASM [None]
